FAERS Safety Report 8521543-5 (Version None)
Quarter: 2012Q3

REPORT INFORMATION
  Report Type: 
  Country: None (occurrence: None)
  Receive Date: 20120719
  Receipt Date: 20120716
  Transmission Date: 20120928
  Serious: Yes (Other)
  Sender: FDA-Public Use
  Company Number: PHEH2012US010755

PATIENT
  Sex: Male

DRUGS (1)
  1. DIOVAN [Suspect]
     Dosage: 12.5 MG, DAILY
     Dates: start: 19980409

REACTIONS (2)
  - MYOCARDIAL INFARCTION [None]
  - RETINAL VEIN OCCLUSION [None]
